FAERS Safety Report 8617194 (Version 4)
Quarter: 2012Q4

REPORT INFORMATION
  Report Type: 
  Country: US (occurrence: US)
  Receive Date: 20120615
  Receipt Date: 20121105
  Transmission Date: 20130627
  Serious: Yes (Other)
  Sender: FDA-Public Use
  Company Number: US-PFIZER INC-2012142735

PATIENT
  Age: 26 Year
  Sex: Female
  Weight: 63.49 kg

DRUGS (8)
  1. LYRICA [Suspect]
     Indication: FIBROMYALGIA
     Dosage: 75 mg, 1x/day
     Route: 048
     Dates: start: 20120530
  2. LYRICA [Suspect]
     Dosage: 75 mg, 2x/day
     Route: 048
  3. LYRICA [Suspect]
     Dosage: 75 mg, 3x/day
     Route: 048
  4. LYRICA [Suspect]
     Dosage: 80 mg, 3x/day
     Route: 048
     Dates: start: 2012, end: 201209
  5. ATENOLOL [Concomitant]
     Indication: PALPITATIONS
     Dosage: 50 mg, 2x/day
  6. NEXIUM [Concomitant]
     Indication: ACID REFLUX (ESOPHAGEAL)
     Dosage: 40 mg, daily
  7. VITAMIN B12 [Concomitant]
     Indication: FATIGUE
     Dosage: 5000 ug, UNK
  8. VITAMIN D3 [Concomitant]
     Indication: PAIN
     Dosage: 1000 ug, UNK

REACTIONS (9)
  - Weight increased [Recovered/Resolved]
  - Gastrointestinal disorder [Unknown]
  - Hunger [Recovered/Resolved]
  - Eating disorder [Recovered/Resolved]
  - Fatigue [Unknown]
  - Paraesthesia [Unknown]
  - Constipation [Recovered/Resolved]
  - Drug ineffective [Not Recovered/Not Resolved]
  - Blood cholesterol increased [Unknown]
